FAERS Safety Report 9026405 (Version 1)
Quarter: 2012Q4

REPORT INFORMATION
  Report Type: Spontaneous
  Country: SE (occurrence: None)
  Receive Date: 20121211
  Receipt Date: 20121211
  Transmission Date: 20130627
  Serious: Yes (Other)
  Sender: FDA-Public Use
  Company Number: SE-GDP-12415174

PATIENT
  Age: 28 Year
  Sex: Female

DRUGS (2)
  1. TETRALYSAL [Suspect]
     Indication: ACNE
     Route: 048
     Dates: start: 20120824, end: 20120920
  2. EPIDUO [Suspect]
     Indication: PRODUCT USED FOR UNKNOWN INDICATION
     Dosage: 0.1%-2.5%, Topical
     Route: 061
     Dates: start: 20120824, end: 20121004

REACTIONS (3)
  - Unintended pregnancy [None]
  - Exposure during pregnancy [None]
  - Abortion induced [None]
